FAERS Safety Report 8927694 (Version 1)
Quarter: 2012Q4

REPORT INFORMATION
  Report Type: 
  Country: DE (occurrence: DE)
  Receive Date: 20121127
  Receipt Date: 20121127
  Transmission Date: 20130627
  Serious: Yes (Hospitalization)
  Sender: FDA-Public Use
  Company Number: PHHO2012DE016759

PATIENT
  Age: 72 Year
  Sex: Male
  Weight: 88 kg

DRUGS (7)
  1. AMN107 [Suspect]
     Indication: CHRONIC MYELOID LEUKAEMIA
     Dosage: 300 mg, BID
     Route: 048
     Dates: start: 20121106
  2. PEGINTERFERON ALFA-2B [Suspect]
     Indication: CHRONIC MYELOID LEUKAEMIA
     Dosage: 30 ug, UNK
     Dates: start: 20121106, end: 20121106
  3. ACTRAPID HUMAN [Concomitant]
     Indication: DIABETES MELLITUS
     Dosage: for blood sugar
  4. NEBILET [Concomitant]
     Indication: HYPERTENSION
     Dosage: 5 mg, UNK
  5. PREDNISOLON [Concomitant]
     Indication: PYREXIA
     Dosage: 7.5 mg, UNK
     Dates: start: 20120510
  6. L-THYROXIN [Concomitant]
     Indication: THYROID DISORDER
     Dosage: 50 mg, UNK
  7. DIGITOXIN [Concomitant]
     Indication: ATRIAL FIBRILLATION
     Dosage: 0.07 mg, UNK

REACTIONS (1)
  - Myocardial infarction [Unknown]
